FAERS Safety Report 23988278 (Version 6)
Quarter: 2024Q3

REPORT INFORMATION
  Report Type: Spontaneous
  Country: BR (occurrence: BR)
  Receive Date: 20240619
  Receipt Date: 20240920
  Transmission Date: 20241016
  Serious: Yes (Other)
  Sender: CELLTRION
  Company Number: BR-CELLTRION INC.-2024BR014496

PATIENT

DRUGS (12)
  1. INFLIXIMAB [Suspect]
     Active Substance: INFLIXIMAB
     Indication: Rheumatoid arthritis
     Dosage: 2 AMPOULES EVERY 8 WEEKS
     Route: 042
     Dates: start: 20220719
  2. INFLIXIMAB [Suspect]
     Active Substance: INFLIXIMAB
     Dosage: STARTED TREATMENT WITH REMSIMA ON 01/AUG/2022
     Dates: start: 20220801
  3. INFLIXIMAB [Suspect]
     Active Substance: INFLIXIMAB
     Dosage: UNK
     Route: 042
     Dates: start: 20221110
  4. INFLIXIMAB [Suspect]
     Active Substance: INFLIXIMAB
     Indication: Rheumatoid arthritis
     Dosage: ABOUT 15 DAYS AGO
     Route: 058
  5. INFLIXIMAB [Suspect]
     Active Substance: INFLIXIMAB
     Dosage: UNK
     Route: 058
     Dates: start: 20240612
  6. INFLIXIMAB [Suspect]
     Active Substance: INFLIXIMAB
     Dosage: UNK
     Route: 058
     Dates: start: 20240627
  7. PREDNISONE [Concomitant]
     Active Substance: PREDNISONE
     Indication: Rheumatoid arthritis
     Dosage: 5 MG/ 0.5 PILL A DAY (START DATE: 9 YEARS AGO)
     Route: 048
  8. HYDROXYCHLOROQUINE [Concomitant]
     Active Substance: HYDROXYCHLOROQUINE
     Indication: Rheumatoid arthritis
     Dosage: 1 PILL A DAY (START DATE: 9 YEARS AGO)
     Route: 048
  9. VITAMINS NOS [Concomitant]
     Active Substance: VITAMINS
     Dosage: 1 PILL A DAY (START DATE: 5 YEARS AGO)
     Route: 048
  10. ENALAPRIL [Concomitant]
     Active Substance: ENALAPRIL
     Indication: Hypertension
     Dosage: 10 MG/ 1 PILL A DAY (START DATE: 5 YEARS AGO)
     Route: 048
  11. AMILORIDE [Concomitant]
     Active Substance: AMILORIDE
     Indication: Hypertension
     Dosage: 5 MG/ 0.5 PILL A DAY (START DATE: MORE THAN 10 YEARS AGO)
     Route: 048
  12. SIMVASTATIN [Concomitant]
     Active Substance: SIMVASTATIN
     Indication: Blood cholesterol increased
     Dosage: 20 MG/ 1 PILL A DAY (START DATE:MORE THAN 10 YEARS AGO)
     Route: 048

REACTIONS (5)
  - Rheumatoid arthritis [Not Recovered/Not Resolved]
  - Infusion related reaction [Recovering/Resolving]
  - Therapy interrupted [Unknown]
  - Product distribution issue [Unknown]
  - Product supply issue [Unknown]

NARRATIVE: CASE EVENT DATE: 20231201
